FAERS Safety Report 5935192-6 (Version None)
Quarter: 2008Q4

REPORT INFORMATION
  Report Type: 
  Country: None (occurrence: None)
  Receive Date: 20081028
  Receipt Date: 20081016
  Transmission Date: 20090506
  Serious: Yes (Hospitalization)
  Sender: FDA-Public Use
  Company Number: SPV1-2008-02245

PATIENT
  Age: 29 Year
  Sex: Female

DRUGS (2)
  1. PENTASA [Suspect]
     Indication: COLITIS ULCERATIVE
     Dosage: 1 G, 4XDAY:QID, ORAL
     Route: 048
  2. LOPERAMIDE HCL [Concomitant]

REACTIONS (9)
  - COLITIS ULCERATIVE [None]
  - CONDITION AGGRAVATED [None]
  - EXERCISE ELECTROCARDIOGRAM ABNORMAL [None]
  - HYPOTENSION [None]
  - LEFT VENTRICULAR HYPERTROPHY [None]
  - NODAL RHYTHM [None]
  - SINUS ARREST [None]
  - SINUS BRADYCARDIA [None]
  - VENTRICULAR DYSFUNCTION [None]
